FAERS Safety Report 7499590-4 (Version None)
Quarter: 2011Q2

REPORT INFORMATION
  Report Type: 
  Country: None (occurrence: None)
  Receive Date: 20110524
  Receipt Date: 20110513
  Transmission Date: 20111010
  Serious: Yes (Hospitalization)
  Sender: FDA-Public Use
  Company Number: GB-TEVA-282025ISR

PATIENT
  Sex: Female

DRUGS (3)
  1. WARFARIN SODIUM [Suspect]
     Dates: start: 20110309
  2. DIGOXIN [Suspect]
     Dosage: 125 MICROGRAM;
     Route: 048
  3. BENZYLPENICILLIN SODIUM [Suspect]

REACTIONS (5)
  - VISION BLURRED [None]
  - CONTUSION [None]
  - INTERNATIONAL NORMALISED RATIO INCREASED [None]
  - DRUG INTERACTION [None]
  - CARDIAC FAILURE CHRONIC [None]
